FAERS Safety Report 12982628 (Version 1)
Quarter: 2016Q4

REPORT INFORMATION
  Report Type: Spontaneous
  Country: US (occurrence: US)
  Receive Date: 20161128
  Receipt Date: 20161128
  Transmission Date: 20170207
  Serious: Yes (Other)
  Sender: FDA-Public Use
  Company Number: None

PATIENT
  Age: 85 Year
  Sex: Male
  Weight: 75.82 kg

DRUGS (11)
  1. COQ10 [Concomitant]
     Active Substance: UBIDECARENONE
  2. MELOXICAM. [Concomitant]
     Active Substance: MELOXICAM
  3. PRILOSEC [Concomitant]
     Active Substance: OMEPRAZOLE MAGNESIUM
  4. LORAZEPAM. [Concomitant]
     Active Substance: LORAZEPAM
  5. HYDROMORPHONE [Suspect]
     Active Substance: HYDROMORPHONE
     Indication: PROCEDURAL PAIN
     Dosage: EVERY 4-6 HRS AS NEEDED FOR PAIN, MOUTH
     Route: 048
     Dates: start: 20161111, end: 20161115
  6. TAMASOLIN [Concomitant]
  7. TYLENOL PM [Concomitant]
     Active Substance: ACETAMINOPHEN\DIPHENHYDRAMINE
  8. PRADAXA [Concomitant]
     Active Substance: DABIGATRAN ETEXILATE MESYLATE
  9. FINASTERIDE. [Concomitant]
     Active Substance: FINASTERIDE
  10. PRAMIPLEXOL [Concomitant]
  11. LIPITOR (GENERIC) [Concomitant]

REACTIONS (2)
  - Rash generalised [None]
  - Pruritus generalised [None]

NARRATIVE: CASE EVENT DATE: 20161112
